FAERS Safety Report 9014269 (Version 4)
Quarter: 2013Q2

REPORT INFORMATION
  Report Type: Report from Study
  Country: US (occurrence: US)
  Receive Date: 20130115
  Receipt Date: 20130419
  Transmission Date: 20140414
  Serious: Yes (Other)
  Sender: FDA-Public Use
  Company Number: US-JNJFOC-20121203159

PATIENT
  Sex: Female

DRUGS (5)
  1. REMICADE [Suspect]
     Indication: PSORIATIC ARTHROPATHY
     Route: 042
     Dates: start: 20121113
  2. REMICADE [Suspect]
     Indication: PSORIATIC ARTHROPATHY
     Route: 042
     Dates: end: 201210
  3. REMICADE [Suspect]
     Indication: PSORIATIC ARTHROPATHY
     Route: 042
     Dates: start: 201203, end: 20120925
  4. REMICADE [Suspect]
     Indication: PSORIATIC ARTHROPATHY
     Route: 042
     Dates: start: 201201
  5. MOBIC [Concomitant]
     Indication: PAIN MANAGEMENT
     Route: 065
     Dates: start: 2010, end: 2012

REACTIONS (3)
  - Hepatic failure [Not Recovered/Not Resolved]
  - Epistaxis [Unknown]
  - Autoimmune hepatitis [Not Recovered/Not Resolved]
